FAERS Safety Report 19217564 (Version 1)
Quarter: 2021Q2

REPORT INFORMATION
  Report Type: Spontaneous
  Country: DE (occurrence: DE)
  Receive Date: 20210505
  Receipt Date: 20210505
  Transmission Date: 20210717
  Serious: Yes (Other)
  Sender: FDA-Public Use
  Company Number: GXKR2008DE00531

PATIENT
  Age: 69 Year
  Sex: Female
  Weight: 54 kg

DRUGS (2)
  1. METOHEXAL [Suspect]
     Active Substance: METOPROLOL
     Indication: HEART RATE INCREASED
     Dosage: 25 MG, BID
     Route: 048
     Dates: start: 20070219, end: 20070514
  2. L?THYROXINE [Concomitant]
     Active Substance: LEVOTHYROXINE
     Indication: GOITRE
     Dosage: 100 UG, QD
     Route: 048
     Dates: start: 1990

REACTIONS (25)
  - Muscle spasms [Not Recovered/Not Resolved]
  - Hot flush [Not Recovered/Not Resolved]
  - Asthenia [Unknown]
  - Cardiac output decreased [Unknown]
  - Hypothyroidism [Unknown]
  - Joint swelling [Unknown]
  - Spider vein [Unknown]
  - Limb discomfort [Unknown]
  - Asteatosis [Unknown]
  - Atrioventricular block first degree [Unknown]
  - Feeling of despair [Unknown]
  - Body temperature increased [Not Recovered/Not Resolved]
  - Gait disturbance [Unknown]
  - Dyspnoea [Unknown]
  - Nail growth abnormal [Unknown]
  - Heart rate decreased [Unknown]
  - Hypertension [Unknown]
  - Arthralgia [Unknown]
  - Peripheral coldness [Not Recovered/Not Resolved]
  - Chest discomfort [Not Recovered/Not Resolved]
  - Tachycardia [Not Recovered/Not Resolved]
  - Peripheral circulatory failure [Unknown]
  - Constipation [Unknown]
  - Hypoaesthesia [Unknown]
  - Nausea [Unknown]

NARRATIVE: CASE EVENT DATE: 20070515
